FAERS Safety Report 12109414 (Version 1)
Quarter: 2016Q1

REPORT INFORMATION
  Report Type: Spontaneous
  Country: US (occurrence: US)
  Receive Date: 20160224
  Receipt Date: 20160224
  Transmission Date: 20160526
  Serious: No
  Sender: FDA-Public Use
  Company Number: CHPA2016US002452

PATIENT
  Age: 54 Year
  Sex: Female

DRUGS (1)
  1. VOLTAREN [Suspect]
     Active Substance: DICLOFENAC SODIUM
     Indication: OSTEOARTHRITIS
     Dosage: 4 G,  ONCE A DAY AT THE BACK, TWICE A DAY FOR THE KNEES
     Route: 061
     Dates: start: 201512, end: 20160220

REACTIONS (7)
  - Pustular psoriasis [Not Recovered/Not Resolved]
  - Therapeutic response unexpected [Unknown]
  - Skin haemorrhage [Not Recovered/Not Resolved]
  - Drug administered at inappropriate site [Unknown]
  - Scratch [Not Recovered/Not Resolved]
  - Inappropriate schedule of drug administration [Unknown]
  - Psoriasis [Not Recovered/Not Resolved]

NARRATIVE: CASE EVENT DATE: 201512
